FAERS Safety Report 4335545-6 (Version None)
Quarter: 2004Q2

REPORT INFORMATION
  Report Type: 
  Country: None (occurrence: None)
  Receive Date: 20040406
  Receipt Date: 20040324
  Transmission Date: 20050107
  Serious: Yes (Other)
  Sender: FDA-Public Use
  Company Number: 2004021454

PATIENT
  Age: 80 Year
  Sex: Male
  Weight: 86.637 kg

DRUGS (7)
  1. LIPITOR [Suspect]
     Indication: BLOOD CHOLESTEROL INCREASED
     Dosage: 10 MG (DAILY), ORAL
     Route: 048
  2. NEURONTIN [Suspect]
     Indication: NEUROPATHY
     Dosage: 300 MG (TID), ORAL
     Route: 048
     Dates: start: 20030101
  3. DILTIAZEM HYDROCHLORIDE [Concomitant]
  4. LEVOTHYROXINE SODIUM [Concomitant]
  5. ASPIRIN [Concomitant]
  6. CALCIUM [Concomitant]
  7. TOCOPHEROL CONCENTRATE CAP [Concomitant]

REACTIONS (14)
  - ABASIA [None]
  - BACK PAIN [None]
  - BODY HEIGHT DECREASED [None]
  - CORONARY ARTERY SURGERY [None]
  - DRUG INEFFECTIVE [None]
  - EXOSTOSIS [None]
  - FALL [None]
  - NERVE COMPRESSION [None]
  - NEUROPATHY [None]
  - OSTEOARTHRITIS [None]
  - PERNICIOUS ANAEMIA [None]
  - POST PROCEDURAL COMPLICATION [None]
  - SCIATICA [None]
  - SOMNOLENCE [None]
